FAERS Safety Report 13901287 (Version 4)
Quarter: 2017Q4

REPORT INFORMATION
  Report Type: Spontaneous
  Country: US (occurrence: US)
  Receive Date: 20170824
  Receipt Date: 20171012
  Transmission Date: 20180320
  Serious: Yes (Other)
  Sender: FDA-Public Use
  Company Number: US-BIOGEN-2017BI00447500

PATIENT
  Sex: Female

DRUGS (3)
  1. TYSABRI [Suspect]
     Active Substance: NATALIZUMAB
     Indication: MULTIPLE SCLEROSIS
     Route: 065
     Dates: start: 20150225, end: 20151105
  2. TYSABRI [Suspect]
     Active Substance: NATALIZUMAB
     Route: 065
     Dates: start: 20160316, end: 20170523
  3. TYSABRI [Suspect]
     Active Substance: NATALIZUMAB
     Route: 065
     Dates: start: 20170919

REACTIONS (10)
  - Hair disorder [Recovered/Resolved]
  - Blindness [Not Recovered/Not Resolved]
  - Biopsy brain [Recovered/Resolved]
  - Memory impairment [Recovered/Resolved]
  - Peripheral coldness [Recovered/Resolved]
  - Lung disorder [Recovered/Resolved]
  - Sinusitis [Recovered/Resolved]
  - Abnormal sensation in eye [Unknown]
  - Confusional state [Recovered/Resolved]
  - Feeling cold [Recovered/Resolved]
